FAERS Safety Report 6106807-7 (Version None)
Quarter: 2009Q1

REPORT INFORMATION
  Report Type: 
  Country: None (occurrence: None)
  Receive Date: 20090304
  Receipt Date: 20090220
  Transmission Date: 20090719
  Serious: Yes (Other)
  Sender: FDA-Public Use
  Company Number: 200902010

PATIENT
  Age: 62 Year
  Sex: Female
  Weight: 72.5755 kg

DRUGS (1)
  1. TESTIM [Suspect]

REACTIONS (2)
  - ACCIDENTAL EXPOSURE [None]
  - OCULAR HYPERAEMIA [None]
